FAERS Safety Report 4495521-X (Version None)
Quarter: 2004Q4

REPORT INFORMATION
  Report Type: 
  Country: None (occurrence: None)
  Receive Date: 20041104
  Receipt Date: 20041101
  Transmission Date: 20050328
  Serious: Yes (Hospitalization)
  Sender: FDA-Public Use
  Company Number: US-JNJFOC-20040602225

PATIENT
  Age: 57 Year
  Sex: Female

DRUGS (6)
  1. IMODIUM A-D [Suspect]
     Indication: DIARRHOEA
     Dosage: 2 MG, 2 IN 1 DAY, ORAL
     Route: 048
     Dates: start: 20020601
  2. LANOXIN [Concomitant]
  3. HYDROCHLOROTHIAZIDE [Concomitant]
  4. CAPOTEN [Concomitant]
  5. PREDNISONE [Concomitant]
  6. EVISTA [Concomitant]

REACTIONS (5)
  - ABDOMINAL PAIN UPPER [None]
  - DIARRHOEA [None]
  - LIPASE INCREASED [None]
  - PARATHYROID DISORDER [None]
  - VOMITING [None]
